FAERS Safety Report 4845248-7 (Version None)
Quarter: 2005Q4

REPORT INFORMATION
  Report Type: 
  Country: None (occurrence: None)
  Receive Date: 20051125
  Receipt Date: 20051114
  Transmission Date: 20060501
  Serious: Yes (Hospitalization, Other)
  Sender: FDA-Public Use
  Company Number: 2005068683

PATIENT
  Sex: Male

DRUGS (1)
  1. BEXTRA [Suspect]
     Indication: FIBROMYALGIA
     Dosage: (10 MG)

REACTIONS (3)
  - CHEST PAIN [None]
  - CORONARY ARTERIAL STENT INSERTION [None]
  - PAIN IN EXTREMITY [None]
